FAERS Safety Report 22636364 (Version 1)
Quarter: 2023Q2

REPORT INFORMATION
  Report Type: Spontaneous
  Country: US (occurrence: None)
  Receive Date: 20230621
  Receipt Date: 20230621
  Transmission Date: 20230722
  Serious: Yes (Hospitalization)
  Sender: FDA-Public Use
  Company Number: None

PATIENT
  Age: 71 Year
  Sex: Female

DRUGS (10)
  1. ENBREL [Suspect]
     Active Substance: ETANERCEPT
     Indication: Rheumatoid arthritis
     Dosage: 50MG  Q 7 DAYS AUTOINJECTOR
     Route: 050
     Dates: start: 20230523
  2. CELECOXIB [Concomitant]
     Active Substance: CELECOXIB
  3. ACETAMINOPHEN E/S CAPLET [Concomitant]
  4. ALENDRONATE [Concomitant]
     Active Substance: ALENDRONATE SODIUM
  5. PULMICORT 180MCG FLEXHALR (120PUFFS) [Concomitant]
  6. ANTACID TABLETS ASSORTED [Concomitant]
  7. CLONAZEPAM [Concomitant]
     Active Substance: CLONAZEPAM
  8. COLCHICINE [Concomitant]
     Active Substance: COLCHICINE
  9. ESTRADIOL [Concomitant]
     Active Substance: ESTRADIOL
  10. FAMOTIDINE [Concomitant]
     Active Substance: FAMOTIDINE

REACTIONS (2)
  - Cardiac disorder [None]
  - Therapy interrupted [None]
